FAERS Safety Report 5247348-9 (Version None)
Quarter: 2007Q1

REPORT INFORMATION
  Report Type: 
  Country: None (occurrence: None)
  Receive Date: 20070227
  Receipt Date: 20070223
  Transmission Date: 20070707
  Serious: Yes (Other)
  Sender: FDA-Public Use
  Company Number: CA-JNJFOC-20070204735

PATIENT
  Age: 55 Year
  Sex: Female

DRUGS (6)
  1. REMICADE [Suspect]
     Indication: DRUG USE FOR UNKNOWN INDICATION
     Route: 042
  2. FOLIC ACID [Concomitant]
  3. FOSAMAX [Concomitant]
  4. HYDROXYCHLOROQUINE SULFATE [Concomitant]
  5. METHOTREXATE [Concomitant]
  6. PREDNISONE [Concomitant]

REACTIONS (3)
  - CHEST X-RAY ABNORMAL [None]
  - LUNG NEOPLASM MALIGNANT [None]
  - TUBERCULOSIS [None]
